FAERS Safety Report 5469399-1 (Version None)
Quarter: 2007Q3

REPORT INFORMATION
  Report Type: 
  Country: None (occurrence: None)
  Receive Date: 20070925
  Receipt Date: 20070925
  Transmission Date: 20080115
  Serious: Yes (Life-Threatening)
  Sender: FDA-Public Use
  Company Number: None

PATIENT
  Sex: Male
  Weight: 90.7194 kg

DRUGS (1)
  1. VIVITROL [Suspect]
     Indication: DRUG DEPENDENCE
     Dosage: 380 MG Q 4 WEEKS IM
     Route: 030
     Dates: start: 20070921

REACTIONS (4)
  - AGITATION [None]
  - ANOREXIA [None]
  - DEPRESSION [None]
  - SUICIDAL IDEATION [None]
